FAERS Safety Report 17436780 (Version 1)
Quarter: 2020Q1

REPORT INFORMATION
  Report Type: Spontaneous
  Country: US (occurrence: US)
  Receive Date: 20200219
  Receipt Date: 20200219
  Transmission Date: 20200409
  Serious: No
  Sender: FDA-Public Use
  Company Number: US-SA-2020SA041537

PATIENT
  Age: 52 Year
  Sex: Male

DRUGS (19)
  1. DUPIXENT [Suspect]
     Active Substance: DUPILUMAB
     Indication: ASTHMA
     Dosage: 300 MG, QOW
     Route: 058
     Dates: start: 20150609
  2. NASONEX [Concomitant]
     Active Substance: MOMETASONE FUROATE
  3. XOPENEX [Concomitant]
     Active Substance: LEVALBUTEROL HYDROCHLORIDE
  4. ADDERALL [Concomitant]
     Active Substance: AMPHETAMINE ASPARTATE\AMPHETAMINE SULFATE\DEXTROAMPHETAMINE SACCHARATE\DEXTROAMPHETAMINE SULFATE
  5. AMPHETAMINE [Concomitant]
     Active Substance: AMPHETAMINE
  6. BUPROPION. [Concomitant]
     Active Substance: BUPROPION
  7. QVAR [Concomitant]
     Active Substance: BECLOMETHASONE DIPROPIONATE
  8. DILTIAZEM XR [Concomitant]
     Active Substance: DILTIAZEM
  9. DULERA [Concomitant]
     Active Substance: FORMOTEROL FUMARATE DIHYDRATE\MOMETASONE FUROATE
  10. MONTELUKAST [Concomitant]
     Active Substance: MONTELUKAST SODIUM
  11. SIMVASTATIN. [Concomitant]
     Active Substance: SIMVASTATIN
  12. DEXTRA [Concomitant]
     Active Substance: DEXTROMETHORPHAN HYDROBROMIDE
  13. LOSARTAN. [Concomitant]
     Active Substance: LOSARTAN
  14. METFORMIN [Concomitant]
     Active Substance: METFORMIN HYDROCHLORIDE
  15. CLARITHROMYCIN. [Concomitant]
     Active Substance: CLARITHROMYCIN
  16. EPIPEN JR [Concomitant]
     Active Substance: EPINEPHRINE
  17. CLARITIN [Concomitant]
     Active Substance: LORATADINE
  18. CLONAZEPAM. [Concomitant]
     Active Substance: CLONAZEPAM
  19. MELATONIN [Concomitant]
     Active Substance: MELATONIN

REACTIONS (1)
  - Depression [Not Recovered/Not Resolved]
